FAERS Safety Report 8955553 (Version 3)
Quarter: 2015Q1

REPORT INFORMATION
  Report Type: Report from Study
  Country: FR (occurrence: FR)
  Receive Date: 20121207
  Receipt Date: 20150320
  Transmission Date: 20150721
  Serious: Yes (Death, Hospitalization)
  Sender: FDA-Public Use
  Company Number: FR-ROCHE-1164187

PATIENT
  Age: 63 Year
  Sex: Male

DRUGS (3)
  1. RITUXIMAB [Suspect]
     Active Substance: RITUXIMAB
     Indication: RHEUMATOID ARTHRITIS
     Dosage: EVENT ^PANCREATIC ADENOCARCINOMA^ STARTED 31.5 MONTHS AFTER THE 1ST INFUSION AND 5.1 MONTHS AFTER TH
     Route: 042
     Dates: start: 20070214
  2. CORTANCYL [Concomitant]
     Active Substance: PREDNISONE
     Route: 065
  3. CORTANCYL [Concomitant]
     Active Substance: PREDNISONE
     Route: 065

REACTIONS (4)
  - Pancreatic carcinoma metastatic [Fatal]
  - Pericarditis [Recovered/Resolved]
  - Adenocarcinoma pancreas [Unknown]
  - Embolism [Unknown]

NARRATIVE: CASE EVENT DATE: 200903
